FAERS Safety Report 14419195 (Version 3)
Quarter: 2018Q1

REPORT INFORMATION
  Report Type: Spontaneous
  Country: US (occurrence: US)
  Receive Date: 20180122
  Receipt Date: 20180212
  Transmission Date: 20180509
  Serious: Yes (Other)
  Sender: FDA-Public Use
  Company Number: US-PFIZER INC-2018022657

PATIENT
  Age: 14 Year
  Sex: Male

DRUGS (7)
  1. DOXORUBICIN HCL [Suspect]
     Active Substance: DOXORUBICIN HYDROCHLORIDE
     Dosage: 25 MG/M2, DAILY (FOR 3 DAYS)
  2. DOXORUBICIN HCL [Suspect]
     Active Substance: DOXORUBICIN HYDROCHLORIDE
     Indication: ADENOID CYSTIC CARCINOMA
     Dosage: 25 MG/M2, DAILY (ON DAYS 1, 2, AND 3)
  3. CISPLATIN. [Suspect]
     Active Substance: CISPLATIN
     Indication: ADENOID CYSTIC CARCINOMA
     Dosage: 100 MG/M2, CYCLIC (VIA THE RIGHT EXTERNAL CAROTID ARTERY ON DAY 1)
     Route: 013
  4. CARBOPLATIN. [Concomitant]
     Active Substance: CARBOPLATIN
     Indication: ADENOID CYSTIC CARCINOMA
     Dosage: UNK, CYCLIC (RENALLY ADJUSTED TO AREA UNDER THE CURVE OF 5)
     Route: 013
  5. CARBOPLATIN. [Concomitant]
     Active Substance: CARBOPLATIN
     Dosage: UNK, WEEKLY (RENALLY ADJUSTED TO AUC OF 2)
     Route: 013
  6. CARBOPLATIN. [Concomitant]
     Active Substance: CARBOPLATIN
     Dosage: UNK, CYCLIC (RENALLY ADJUSTED TO AUC OF 5)
     Route: 013
  7. CARBOPLATIN. [Concomitant]
     Active Substance: CARBOPLATIN
     Dosage: UNK, CYCLIC (RENALLY ADJUSTED TO AUC OF 2)
     Route: 013

REACTIONS (4)
  - Chronic kidney disease [Not Recovered/Not Resolved]
  - Acute kidney injury [Not Recovered/Not Resolved]
  - Necrosis [Recovered/Resolved]
  - Inflammation [Recovered/Resolved]
